FAERS Safety Report 26000410 (Version 1)
Quarter: 2025Q4

REPORT INFORMATION
  Report Type: Spontaneous
  Country: PR (occurrence: PR)
  Receive Date: 20251105
  Receipt Date: 20251105
  Transmission Date: 20260119
  Serious: No
  Sender: ANI
  Company Number: PR-ANIPHARMA-2025-PR-000053

PATIENT
  Age: 81 Year
  Sex: Male
  Weight: 76.2 kg

DRUGS (5)
  1. CORTICOTROPIN [Suspect]
     Active Substance: CORTICOTROPIN
     Indication: Gout
     Dosage: 40 U DAILY
     Route: 058
     Dates: start: 202411
  2. ATORVASTATIN CALCIUM [Concomitant]
     Active Substance: ATORVASTATIN CALCIUM
     Route: 048
  3. HUMULIN 70/30 [Concomitant]
     Active Substance: INSULIN HUMAN
     Route: 058
  4. SYNTHROID [Concomitant]
     Active Substance: LEVOTHYROXINE SODIUM
     Route: 048
  5. LOSARTAN POTASSIUM [Concomitant]
     Active Substance: LOSARTAN POTASSIUM
     Route: 048

REACTIONS (2)
  - Blood glucose increased [Unknown]
  - Expired product administered [Recovered/Resolved]
